FAERS Safety Report 16371500 (Version 1)
Quarter: 2019Q2

REPORT INFORMATION
  Report Type: Spontaneous
  Country: US (occurrence: US)
  Receive Date: 20190530
  Receipt Date: 20190530
  Transmission Date: 20190711
  Serious: No
  Sender: FDA-Public Use
  Company Number: US-PFIZER INC-2019230274

PATIENT
  Age: 59 Year
  Sex: Female
  Weight: 79.38 kg

DRUGS (1)
  1. CHANTIX [Suspect]
     Active Substance: VARENICLINE TARTRATE
     Indication: SMOKING CESSATION THERAPY
     Dosage: 1 MG, DAILY (1MG, 1 TABLET BY MOUTH DAILY)
     Route: 048
     Dates: start: 2018

REACTIONS (2)
  - Drug ineffective [Unknown]
  - Mass [Unknown]

NARRATIVE: CASE EVENT DATE: 2018
